FAERS Safety Report 4534414-6 (Version None)
Quarter: 2004Q4

REPORT INFORMATION
  Report Type: 
  Country: None (occurrence: None)
  Receive Date: 20041222
  Receipt Date: 20041216
  Transmission Date: 20050328
  Serious: Yes (Death)
  Sender: FDA-Public Use
  Company Number: JP-JNJFOC-20030601234

PATIENT
  Sex: Female

DRUGS (10)
  1. DUROTEP [Suspect]
     Indication: CANCER PAIN
     Route: 062
     Dates: start: 20030213, end: 20030401
  2. BROTIZOLAM [Concomitant]
     Indication: INSOMNIA
     Route: 049
  3. NIFEDIPINE [Concomitant]
     Indication: HYPERTENSION
     Route: 049
     Dates: start: 20030125, end: 20030401
  4. SENNOSIDE [Concomitant]
     Indication: CONSTIPATION
     Route: 049
     Dates: start: 20030126, end: 20030401
  5. MAGNESIUM OXIDE [Concomitant]
     Indication: CONSTIPATION
     Route: 049
     Dates: start: 20030129, end: 20030401
  6. LACTOMIN [Concomitant]
     Indication: CONSTIPATION
     Route: 049
     Dates: start: 20030129, end: 20030401
  7. PROCATEROL HCL [Concomitant]
     Route: 055
     Dates: start: 20030129, end: 20030401
  8. FUROSEMIDE [Concomitant]
     Route: 049
     Dates: start: 20030211, end: 20030401
  9. GEMCITABINE HYDROCHLORIDE [Concomitant]
     Indication: PANCREATIC CARCINOMA
     Route: 041
     Dates: start: 20030217, end: 20030401
  10. SPIRONOLACTONE [Concomitant]
     Route: 049
     Dates: start: 20030211

REACTIONS (2)
  - PANCREATIC CARCINOMA [None]
  - PERITONITIS [None]
